FAERS Safety Report 23263546 (Version 1)
Quarter: 2023Q4

REPORT INFORMATION
  Report Type: Spontaneous
  Country: CN (occurrence: CN)
  Receive Date: 20231205
  Receipt Date: 20231205
  Transmission Date: 20240110
  Serious: Yes (Other)
  Sender: FDA-Public Use
  Company Number: CN-PFIZER INC-PV202300194881

PATIENT
  Age: 56 Year
  Sex: Male

DRUGS (7)
  1. VFEND [Suspect]
     Active Substance: VORICONAZOLE
     Indication: Antifungal treatment
     Dosage: UNK
     Route: 048
  2. ARSENIC TRIOXIDE [Suspect]
     Active Substance: ARSENIC TRIOXIDE
     Indication: Chemotherapy
     Dosage: UNK
  3. DAUNORUBICIN [Suspect]
     Active Substance: DAUNORUBICIN
     Indication: Acute promyelocytic leukaemia
     Dosage: 80 MG, D2, 4, 6
     Dates: start: 20230817
  4. TRETINOIN [Suspect]
     Active Substance: TRETINOIN
     Indication: Chemotherapy
     Dosage: UNK
  5. CASPOFUNGIN [Concomitant]
     Active Substance: CASPOFUNGIN
     Indication: Infection
     Dosage: UNK
  6. HYDROXYUREA [Concomitant]
     Active Substance: HYDROXYUREA
     Dosage: GRADUALLY DESCENDING DOSAGE
     Route: 048
  7. CILASTATIN SODIUM\IMIPENEM [Concomitant]
     Active Substance: CILASTATIN SODIUM\IMIPENEM
     Indication: Infection
     Dosage: UNK

REACTIONS (4)
  - Neutropenic infection [Unknown]
  - Pyrexia [Unknown]
  - Decreased appetite [Unknown]
  - Depressed mood [Unknown]

NARRATIVE: CASE EVENT DATE: 20230828
